FAERS Safety Report 6336105-8 (Version None)
Quarter: 2009Q3

REPORT INFORMATION
  Report Type: 
  Country: None (occurrence: None)
  Receive Date: 20090901
  Receipt Date: 20090827
  Transmission Date: 20100115
  Serious: Yes (Life-Threatening, Hospitalization)
  Sender: FDA-Public Use
  Company Number: JP-JNJFOC-20090804244

PATIENT
  Age: 29 Year
  Sex: Male

DRUGS (9)
  1. RISPERDAL [Suspect]
     Indication: DRUG USE FOR UNKNOWN INDICATION
     Route: 048
  2. RISPERDAL CONSTA [Suspect]
     Indication: DRUG USE FOR UNKNOWN INDICATION
     Route: 030
  3. AKINETON [Concomitant]
     Route: 048
  4. LORAZEPAM [Concomitant]
     Route: 048
  5. GASTER [Concomitant]
     Route: 048
  6. AMOBAN [Concomitant]
     Route: 048
  7. HALCION [Concomitant]
     Route: 048
  8. MEILAX [Concomitant]
     Route: 048
  9. ROHYPNOL [Concomitant]
     Route: 048

REACTIONS (3)
  - OVERDOSE [None]
  - PNEUMONIA ASPIRATION [None]
  - PSYCHIATRIC SYMPTOM [None]
